FAERS Safety Report 4646706-0 (Version None)
Quarter: 2005Q2

REPORT INFORMATION
  Report Type: 
  Country: None (occurrence: None)
  Receive Date: 20050427
  Receipt Date: 20050418
  Transmission Date: 20051028
  Serious: Yes (Disabling)
  Sender: FDA-Public Use
  Company Number: BR-GLAXOSMITHKLINE-A0555062A

PATIENT
  Age: 45 Year
  Sex: Female

DRUGS (2)
  1. WELLBUTRIN [Suspect]
     Indication: DEPRESSION
     Route: 048
     Dates: start: 20050303, end: 20050418
  2. TOPIRAMATE [Concomitant]

REACTIONS (3)
  - DEAFNESS [None]
  - DEAFNESS UNILATERAL [None]
  - TINNITUS [None]
